FAERS Safety Report 7891598 (Version 3)
Quarter: 2013Q4

REPORT INFORMATION
  Report Type: Spontaneous
  Country: US (occurrence: US)
  Receive Date: 20110408
  Receipt Date: 20131104
  Transmission Date: 20140711
  Serious: Yes (Hospitalization)
  Sender: FDA-Public Use
  Company Number: US-B.I. PHARMACEUTICALS,INC./RIDGEFIELD-2011-BP-08289BP

PATIENT
  Age: 78 Year
  Sex: Female
  Weight: 51.26 kg

DRUGS (10)
  1. PRADAXA [Suspect]
     Indication: ATRIAL FIBRILLATION
     Dosage: 300 MG
     Route: 048
     Dates: start: 20101221, end: 20110727
  2. PRADAXA [Suspect]
     Indication: ANTICOAGULANT THERAPY
  3. ULTRAM [Concomitant]
     Route: 048
  4. SPIRIVA [Concomitant]
     Dosage: 18 MCG
     Route: 055
  5. PRILOSEC [Concomitant]
     Dosage: 40 MG
     Route: 048
  6. PRESERVISION [Concomitant]
     Route: 048
  7. MULTIVITAMIN [Concomitant]
     Route: 048
  8. ALBUTEROL [Concomitant]
     Route: 055
  9. LIPITOR [Concomitant]
     Dosage: 40 MG
     Route: 048
  10. BABY ASPIRIN [Concomitant]
     Dosage: 81 MG
     Route: 048

REACTIONS (5)
  - Lower gastrointestinal haemorrhage [Unknown]
  - Angiodysplasia [Unknown]
  - Anaemia [Unknown]
  - Breast pain [Not Recovered/Not Resolved]
  - Rash [Recovered/Resolved]
